FAERS Safety Report 4660894-1 (Version None)
Quarter: 2005Q2

REPORT INFORMATION
  Report Type: 
  Country: None (occurrence: None)
  Receive Date: 20050427
  Receipt Date: 20040622
  Transmission Date: 20051028
  Serious: Yes (Other)
  Sender: FDA-Public Use
  Company Number: US-JNJFOC-20040606031

PATIENT
  Age: 38 Year
  Sex: Female

DRUGS (2)
  1. ULTRAM [Suspect]
     Indication: PAIN
     Dosage: 50 MG, 4 IN 1 DAY,
  2. PAXIL [Concomitant]

REACTIONS (1)
  - CONVULSION [None]
